FAERS Safety Report 24451287 (Version 1)
Quarter: 2024Q4

REPORT INFORMATION
  Report Type: Spontaneous
  Country: US (occurrence: US)
  Receive Date: 20241017
  Receipt Date: 20241017
  Transmission Date: 20250114
  Serious: Yes (Other)
  Sender: ELI LILLY AND COMPANY
  Company Number: US-ELI_LILLY_AND_COMPANY-US202410005230

PATIENT
  Age: 54 Year
  Sex: Male

DRUGS (1)
  1. TALTZ [Suspect]
     Active Substance: IXEKIZUMAB
     Indication: Psoriasis
     Dosage: 40 MG, OTHER (EVERY 4 WEEKS)
     Route: 058

REACTIONS (3)
  - Systemic lupus erythematosus [Unknown]
  - Varicose vein [Unknown]
  - Incorrect dose administered [Unknown]
